FAERS Safety Report 25514405 (Version 1)
Quarter: 2025Q3

REPORT INFORMATION
  Report Type: Spontaneous
  Country: US (occurrence: US)
  Receive Date: 20250703
  Receipt Date: 20250703
  Transmission Date: 20251020
  Serious: No
  Sender: RADIUS PHARM
  Company Number: US-RADIUS HEALTH INC.-2025US000045

PATIENT
  Sex: Female

DRUGS (1)
  1. TYMLOS [Suspect]
     Active Substance: ABALOPARATIDE
     Indication: Product used for unknown indication
     Route: 058
     Dates: end: 2024

REACTIONS (7)
  - Product dose omission issue [Unknown]
  - Muscle spasms [Unknown]
  - Drug ineffective [Unknown]
  - Unevaluable event [Recovered/Resolved]
  - Product quality issue [Unknown]
  - Vein discolouration [Unknown]
  - Vein disorder [Unknown]
